FAERS Safety Report 15313383 (Version 3)
Quarter: 2018Q4

REPORT INFORMATION
  Report Type: Report from Study
  Country: US (occurrence: US)
  Receive Date: 20180823
  Receipt Date: 20181220
  Transmission Date: 20190204
  Serious: No
  Sender: FDA-Public Use
  Company Number: PHEH2018US034825

PATIENT
  Sex: Female

DRUGS (1)
  1. ENTRESTO [Suspect]
     Active Substance: SACUBITRIL\VALSARTAN
     Indication: PRODUCT USED FOR UNKNOWN INDICATION
     Dosage: 24 MG, BID
     Route: 048
     Dates: start: 20180801

REACTIONS (4)
  - Weight increased [Not Recovered/Not Resolved]
  - Hypersensitivity [Unknown]
  - Pruritus [Unknown]
  - Tongue discomfort [Unknown]
